FAERS Safety Report 8875717 (Version 1)
Quarter: 2012Q4

REPORT INFORMATION
  Report Type: 
  Country: AU (occurrence: AU)
  Receive Date: 20121030
  Receipt Date: 20121030
  Transmission Date: 20130627
  Serious: Yes (Other)
  Sender: FDA-Public Use
  Company Number: PHHY2012AU093362

PATIENT
  Sex: Female

DRUGS (10)
  1. ACLASTA [Suspect]
     Indication: OSTEOPOROSIS
     Dosage: 5 mg, UNK
     Route: 042
     Dates: start: 20121005
  2. ASTRIX [Concomitant]
     Dosage: 100 mg, UNK
  3. DIGOXIN [Concomitant]
     Dosage: 62.5 mg, UNK
  4. ANTENEX [Concomitant]
  5. IMDUR [Concomitant]
  6. TRAMADOL [Concomitant]
  7. AVAPRO HCT [Concomitant]
  8. LASIX [Concomitant]
  9. VITAMIN D3 [Concomitant]
  10. PANADOL OSTEO [Concomitant]

REACTIONS (8)
  - Myocardial ischaemia [Unknown]
  - Bundle branch block right [Unknown]
  - Pulmonary hypertension [Unknown]
  - Atrial fibrillation [Not Recovered/Not Resolved]
  - Palpitations [Recovering/Resolving]
  - Insomnia [Recovering/Resolving]
  - Asthenia [Recovering/Resolving]
  - Dizziness [Unknown]
